FAERS Safety Report 18961437 (Version 1)
Quarter: 2021Q1

REPORT INFORMATION
  Report Type: Spontaneous
  Country: GB (occurrence: GB)
  Receive Date: 20210303
  Receipt Date: 20210303
  Transmission Date: 20210420
  Serious: Yes (Other)
  Sender: FDA-Public Use
  Company Number: GB-B.I. PHARMACEUTICALS,INC./RIDGEFIELD-2021-BI-085803

PATIENT
  Age: 65 Year
  Sex: Female
  Weight: 70 kg

DRUGS (15)
  1. IRBESARTAN. [Concomitant]
     Active Substance: IRBESARTAN
     Indication: ILL-DEFINED DISORDER
     Dosage: ONE TO BE TAKEN EACH DAY
     Dates: start: 20181102
  2. ROSUVASTATIN. [Concomitant]
     Active Substance: ROSUVASTATIN
     Indication: ILL-DEFINED DISORDER
     Dosage: ONE TABLET TO BE TAKEN AT NIGHT TO LOWER CHOLES...
     Dates: start: 20201209
  3. SUKKARTO [Concomitant]
     Active Substance: METFORMIN HYDROCHLORIDE
     Indication: ILL-DEFINED DISORDER
     Dosage: (METFORMIN MR) TWO TO BE TAKEN TWICE A DAY FREQUENCY: 0.5, FREQUENCY UNIT: 809
     Dates: start: 20190905
  4. TRAJENTA [Suspect]
     Active Substance: LINAGLIPTIN
     Indication: PRODUCT USED FOR UNKNOWN INDICATION
     Dosage: AS DIRECTED F...
     Dates: start: 20201209
  5. MICONAZOLE. [Concomitant]
     Active Substance: MICONAZOLE
     Indication: ILL-DEFINED DISORDER
     Dosage: TO BE APPLIED TO THE AFFECTED AREA (BUCAL) FOUR...
     Dates: start: 20210118, end: 20210215
  6. GAVISCON ADVANCED [Concomitant]
     Indication: ILL-DEFINED DISORDER
     Dosage: 10ML WITH MEALS
     Dates: start: 20181102
  7. PREDNISOLONE. [Concomitant]
     Active Substance: PREDNISOLONE
     Indication: ILL-DEFINED DISORDER
     Dosage: AS DIRECTED BY CONSULTANT ON REDUCING DOSE
     Dates: start: 20181102, end: 20201204
  8. CALCEOS [Concomitant]
     Active Substance: CALCIUM CARBONATE\CHOLECALCIFEROL
     Indication: ILL-DEFINED DISORDER
     Dosage: ONE TO BE TAKEN TWICE A DAY
     Dates: start: 20181102
  9. AMITRIPTYLINE HYDROCHLORIDE. [Concomitant]
     Active Substance: AMITRIPTYLINE HYDROCHLORIDE
     Indication: ILL-DEFINED DISORDER
     Dosage: ONE TO BE TAKEN EACH NIGHT TO HELP PAIN CONTROL
     Dates: start: 20210118
  10. CETIRIZINE [Concomitant]
     Active Substance: CETIRIZINE HYDROCHLORIDE
     Indication: ILL-DEFINED DISORDER
     Dosage: ONE TO BE TAKEN DAILY
     Dates: start: 20181102
  11. PANTOPRAZOLE [Concomitant]
     Active Substance: PANTOPRAZOLE
     Indication: ILL-DEFINED DISORDER
     Dosage: TWO TO BE TAKEN EACH MORNING
     Dates: start: 20181102
  12. AMLODIPINE [Concomitant]
     Active Substance: AMLODIPINE BESYLATE
     Indication: ILL-DEFINED DISORDER
     Dosage: ONE TO BE TAKEN DAILY
     Dates: start: 20181102
  13. ATORVASTATIN [Concomitant]
     Active Substance: ATORVASTATIN
     Indication: ILL-DEFINED DISORDER
     Dosage: ONE TO BE TAKEN DAILY
     Dates: start: 20191113, end: 20201204
  14. NYSTAN [Concomitant]
     Active Substance: NYSTATIN
     Indication: ILL-DEFINED DISORDER
     Dosage: 1ML TO BE DROPPED INTO THE MOUTH FOUR TIMES A DAY.
     Dates: start: 20201210, end: 20201220
  15. DENOSUMAB [Concomitant]
     Active Substance: DENOSUMAB
     Indication: ILL-DEFINED DISORDER
     Dosage: FOR SUBCUTANEOUS INJECTION, 1 EVERY 6/12 UNTILL...
     Dates: start: 20181102

REACTIONS (3)
  - Swelling face [Recovering/Resolving]
  - Abdominal distension [Recovering/Resolving]
  - Rash [Recovering/Resolving]

NARRATIVE: CASE EVENT DATE: 20210219
